FAERS Safety Report 23324029 (Version 2)
Quarter: 2025Q2

REPORT INFORMATION
  Report Type: Spontaneous
  Country: IT (occurrence: IT)
  Receive Date: 20231221
  Receipt Date: 20250505
  Transmission Date: 20250716
  Serious: Yes (Other)
  Sender: AUROBINDO
  Company Number: IT-SUN PHARMACEUTICAL INDUSTRIES LTD-2023RR-421434

PATIENT
  Age: 58 Year
  Sex: Female

DRUGS (6)
  1. DOCETAXEL [Suspect]
     Active Substance: DOCETAXEL
     Indication: Lung adenocarcinoma
     Route: 065
  2. PEMETREXED [Suspect]
     Active Substance: PEMETREXED
     Indication: Lung adenocarcinoma
     Route: 065
     Dates: start: 201908
  3. CISPLATIN [Suspect]
     Active Substance: CISPLATIN
     Indication: Lung adenocarcinoma
     Route: 065
  4. NINTEDANIB [Suspect]
     Active Substance: NINTEDANIB
     Indication: Lung adenocarcinoma
     Dosage: 400 MILLIGRAM, ONCE A DAY
     Route: 065
  5. DABRAFENIB [Concomitant]
     Active Substance: DABRAFENIB
     Indication: Product used for unknown indication
     Route: 065
     Dates: start: 20200429
  6. TRAMETINIB [Concomitant]
     Active Substance: TRAMETINIB
     Indication: Product used for unknown indication
     Route: 065
     Dates: start: 20200429

REACTIONS (2)
  - Disease progression [Unknown]
  - Metastases to central nervous system [Unknown]
